FAERS Safety Report 10142302 (Version 1)
Quarter: 2014Q2

REPORT INFORMATION
  Report Type: Spontaneous
  Country: NL (occurrence: NL)
  Receive Date: 20140430
  Receipt Date: 20140430
  Transmission Date: 20141212
  Serious: Yes (Hospitalization, Other)
  Sender: FDA-Public Use
  Company Number: NL-AMGEN-NLDSP2011071008

PATIENT
  Age: 74 Year
  Sex: Female

DRUGS (1)
  1. ARANESP [Suspect]
     Indication: NEPHROGENIC ANAEMIA
     Dosage: 150 MUG, QWK
     Route: 058
     Dates: start: 20090921, end: 20130513

REACTIONS (5)
  - Hospitalisation [Recovered/Resolved]
  - Cardiac pacemaker insertion [Unknown]
  - Post procedural haemorrhage [Unknown]
  - Post procedural haematoma [Unknown]
  - Haemoglobin decreased [Unknown]
